FAERS Safety Report 11989223 (Version 1)
Quarter: 2016Q1

REPORT INFORMATION
  Report Type: Spontaneous
  Country: US (occurrence: US)
  Receive Date: 20160202
  Receipt Date: 20160202
  Transmission Date: 20160526
  Serious: No
  Sender: FDA-Public Use
  Company Number: US-TARO-2015TAR00739

PATIENT
  Sex: Male

DRUGS (2)
  1. CLOMIPRAMINE HCL CAPSULES 75 MG [Suspect]
     Active Substance: CLOMIPRAMINE HYDROCHLORIDE
  2. CLOMIPRAMINE HCL CAPSULES 50 MG [Suspect]
     Active Substance: CLOMIPRAMINE HYDROCHLORIDE

REACTIONS (1)
  - Malaise [Unknown]
